FAERS Safety Report 9030547 (Version 2)
Quarter: 2013Q1

REPORT INFORMATION
  Report Type: Spontaneous
  Country: FR (occurrence: FR)
  Receive Date: 20130122
  Receipt Date: 20130129
  Transmission Date: 20140127
  Serious: Yes (Hospitalization)
  Sender: FDA-Public Use
  Company Number: FR-PFIZER INC-2013022340

PATIENT
  Age: 88 Year
  Sex: Male

DRUGS (10)
  1. CORDARONE [Suspect]
     Dosage: 100 MG, DAILY
     Route: 048
     Dates: end: 20120912
  2. ATENOLOL [Interacting]
     Dosage: 25 MG, DAILY
     Route: 048
     Dates: end: 20120912
  3. FLODIL [Concomitant]
     Dosage: 5 MG, DAILY
     Route: 048
  4. SIMVASTATIN [Concomitant]
     Dosage: 20 MG, DAILY
     Route: 048
  5. ZYLORIC [Concomitant]
     Dosage: 200 MG, 1DAILY
     Route: 048
  6. PLAVIX [Concomitant]
     Dosage: 75 MG, DAILY
     Route: 048
  7. PERINDOPRIL [Concomitant]
     Dosage: 2 MG, DAILY
     Route: 048
  8. SINTROM [Concomitant]
     Dosage: 4 MG, DAILY
     Route: 048
  9. LEXOMIL [Concomitant]
     Dosage: 0.25 DF, DAILY
     Route: 048
  10. DISCOTRINE [Concomitant]
     Dosage: 1 DF, DAILY
     Route: 062

REACTIONS (3)
  - Drug interaction [Recovered/Resolved]
  - Cardiac failure [Recovered/Resolved]
  - Bradycardia [Recovered/Resolved]
